FAERS Safety Report 9626809 (Version 1)
Quarter: 2013Q4

REPORT INFORMATION
  Report Type: Report from Study
  Country: US (occurrence: US)
  Receive Date: 20131016
  Receipt Date: 20131016
  Transmission Date: 20140711
  Serious: Yes (Hospitalization)
  Sender: FDA-Public Use
  Company Number: US-PFIZER INC-2013292144

PATIENT
  Age: 72 Year
  Sex: Female

DRUGS (4)
  1. PHENYTOIN [Suspect]
     Dosage: 300 MG, 1X/DAY
  2. PHENOBARBITAL [Concomitant]
     Dosage: 45 MG, DAILY
  3. PHENOBARBITAL [Concomitant]
     Dosage: 100 MG, 1X/DAY AT NIGHT
  4. PHENACETIN [Concomitant]
     Dosage: 5 G, 2X/DAY

REACTIONS (4)
  - Dyskinesia [Recovered/Resolved]
  - Chorea [Recovered/Resolved]
  - Intention tremor [Recovered/Resolved]
  - Gait disturbance [Unknown]
